FAERS Safety Report 15169734 (Version 1)
Quarter: 2018Q3

REPORT INFORMATION
  Report Type: Spontaneous
  Country: US (occurrence: US)
  Receive Date: 20180720
  Receipt Date: 20180720
  Transmission Date: 20181010
  Serious: No
  Sender: FDA-Public Use
  Company Number: US-BIOGEN-2018BI00610063

PATIENT
  Sex: Female

DRUGS (1)
  1. TYSABRI [Suspect]
     Active Substance: NATALIZUMAB
     Indication: MULTIPLE SCLEROSIS
     Route: 042
     Dates: start: 20180329, end: 20180509

REACTIONS (3)
  - Aphasia [Recovered/Resolved]
  - Dysphemia [Not Recovered/Not Resolved]
  - Gait disturbance [Not Recovered/Not Resolved]
